FAERS Safety Report 6720126-7 (Version None)
Quarter: 2010Q2

REPORT INFORMATION
  Report Type: 
  Country: None (occurrence: None)
  Receive Date: 20100507
  Receipt Date: 20100422
  Transmission Date: 20101027
  Serious: Yes (Hospitalization, Other)
  Sender: FDA-Public Use
  Company Number: 006418

PATIENT
  Age: 79 Year
  Sex: Male

DRUGS (21)
  1. PEGAPTANIB SODIUM (PEGAPTANIB SODIUM) UNKNOWN [Suspect]
     Indication: CHOROIDAL NEOVASCULARISATION
     Dosage: 0.3 MG, INTRAOCULAR
     Route: 031
     Dates: start: 20090814
  2. PEGAPTANIB SODIUM (PEGAPTANIB SODIUM) UNKNOWN [Suspect]
     Indication: MACULAR DEGENERATION
     Dosage: 0.3 MG, INTRAOCULAR
     Route: 031
     Dates: start: 20090814
  3. HYALEIN (HYALURONATE SODIUM) [Concomitant]
  4. FLOMOX (CEFCAPENE PIVOXIL HYDROCHLORIDE) [Concomitant]
  5. LEVOFLOXACIN [Concomitant]
  6. XYLOCAINE [Concomitant]
  7. POLYVINYLALCOHOL/IODINE (IODINE, POLYVINYL ALCOHOL) [Concomitant]
  8. MYDRIN P (PHENYLEPHRINE HYDROCHLORIDE, TROPICAMIDE) [Concomitant]
  9. INSULIN HUMAN (INSULIN HUMAN) [Concomitant]
  10. LANSOPRAZOLE [Concomitant]
  11. SOLON (SOFALCONE) [Concomitant]
  12. TORASMEIDE (TORASEMIDE) [Concomitant]
  13. ALLOPURINOL [Concomitant]
  14. ISONIAZID [Concomitant]
  15. THEOLONG (THEOPHYLLINE) [Concomitant]
  16. MUCOSOLVAN (AMBROXOL HYDROCHLORIDE) [Concomitant]
  17. ADALAT CC [Concomitant]
  18. TALION (BEPOTASTINE BESILATE) [Concomitant]
  19. HOKUNALIN (TULOBUTEROL HYDROCHLORIDE) [Concomitant]
  20. CELECOXIB [Concomitant]
  21. MUCOSTA (REBAMIPIDE) [Concomitant]

REACTIONS (2)
  - BLOOD PRESSURE DECREASED [None]
  - CEREBRAL INFARCTION [None]
